FAERS Safety Report 6094101-2 (Version None)
Quarter: 2009Q1

REPORT INFORMATION
  Report Type: 
  Country: None (occurrence: None)
  Receive Date: 20090226
  Receipt Date: 20090225
  Transmission Date: 20090719
  Serious: Yes (Other)
  Sender: FDA-Public Use
  Company Number: US-PFIZER INC-2009175404

PATIENT
  Sex: Male
  Weight: 78.912 kg

DRUGS (8)
  1. LIPITOR [Suspect]
     Indication: BLOOD CHOLESTEROL INCREASED
     Dosage: 20 MG, UNK
     Route: 048
     Dates: start: 20080220
  2. SIMVASTATIN [Suspect]
     Indication: BLOOD CHOLESTEROL INCREASED
     Dosage: 40 MG, UNK
     Dates: start: 20080116
  3. PLAVIX [Concomitant]
     Dosage: UNK
  4. ALLOPURINOL [Concomitant]
     Dosage: UNK
  5. ACETYLSALICYLIC ACID [Concomitant]
     Dosage: UNK
  6. TRICOR [Concomitant]
     Dosage: UNK
  7. RAMIPRIL [Concomitant]
     Dosage: UNK
  8. METOPROLOL TARTRATE [Concomitant]
     Dosage: UNK

REACTIONS (5)
  - GALLOP RHYTHM PRESENT [None]
  - INCORRECT DOSE ADMINISTERED [None]
  - PAIN [None]
  - SYNCOPE [None]
  - WRONG TECHNIQUE IN DRUG USAGE PROCESS [None]
